FAERS Safety Report 10134819 (Version 2)
Quarter: 2015Q1

REPORT INFORMATION
  Report Type: Other
  Country: US (occurrence: US)
  Receive Date: 20140428
  Receipt Date: 20150220
  Transmission Date: 20150720
  Serious: Yes (Hospitalization, Other)
  Sender: FDA-Public Use
  Company Number: US-GSKPPD-2014GSK035963

PATIENT
  Age: 65 Year
  Sex: Female

DRUGS (11)
  1. ACCUPRIL [Concomitant]
     Active Substance: QUINAPRIL HYDROCHLORIDE
  2. ATIVAN [Concomitant]
     Active Substance: LORAZEPAM
  3. REGULAR INSULIN [Concomitant]
     Active Substance: INSULIN NOS
     Dosage: 23 UNITS
     Route: 058
  4. TOPROL XL [Concomitant]
     Active Substance: METOPROLOL SUCCINATE
  5. LANTUS [Concomitant]
     Active Substance: INSULIN GLARGINE
     Dosage: 45 UNITS
     Route: 058
  6. AVANDIA [Suspect]
     Active Substance: ROSIGLITAZONE MALEATE
     Indication: DIABETES MELLITUS
     Dosage: AVANDIA WAS NOT LISTED AMONG THE PATIENTS RECORDS REVIEWED.
     Route: 048
  7. PLAVIX [Concomitant]
     Active Substance: CLOPIDOGREL BISULFATE
  8. LIPITOR [Concomitant]
     Active Substance: ATORVASTATIN CALCIUM
  9. LASIX [Concomitant]
     Active Substance: FUROSEMIDE
  10. LASIX [Concomitant]
     Active Substance: FUROSEMIDE
     Dosage: TREATMENT MEDICATION
     Route: 042
  11. ASPIRIN. [Concomitant]
     Active Substance: ASPIRIN

REACTIONS (2)
  - Myocardial ischaemia [Unknown]
  - Coronary artery disease [Recovered/Resolved]

NARRATIVE: CASE EVENT DATE: 20070213
